FAERS Safety Report 7067906-9 (Version None)
Quarter: 2010Q4

REPORT INFORMATION
  Report Type: 
  Country: None (occurrence: None)
  Receive Date: 20101004
  Receipt Date: 20100921
  Transmission Date: 20110411
  Serious: Yes (Hospitalization)
  Sender: FDA-Public Use
  Company Number: 2010PROUSA00036

PATIENT
  Age: 72 Year
  Sex: Male
  Weight: 91.2 kg

DRUGS (13)
  1. PROVENGE [Suspect]
     Indication: PROSTATE CANCER METASTATIC
     Dosage: 250 ML, SINGLE, INTRAVENOUS
     Route: 042
     Dates: start: 20100722, end: 20100722
  2. PROVENGE [Suspect]
     Indication: PROSTATE CANCER METASTATIC
     Dosage: 250 ML, SINGLE, INTRAVENOUS
     Route: 042
     Dates: start: 20100805, end: 20100805
  3. PROVENGE [Suspect]
     Indication: PROSTATE CANCER METASTATIC
     Dosage: 250 ML, SINGLE, INTRAVENOUS
     Route: 042
     Dates: start: 20100916, end: 20100916
  4. PROVENGE [Suspect]
  5. PROVENGE [Suspect]
  6. PLAVIX [Concomitant]
  7. CRESTOR [Concomitant]
  8. IMIPRAMINE [Concomitant]
  9. NIASPAN [Concomitant]
  10. ASPIRIN [Concomitant]
  11. SYMLIN [Concomitant]
  12. NOVOLOG [Concomitant]
  13. LANTUS /01483501/ (INSULIN GLARGINE) [Concomitant]

REACTIONS (3)
  - ANAEMIA [None]
  - DEVICE RELATED SEPSIS [None]
  - STAPHYLOCOCCAL SEPSIS [None]
